FAERS Safety Report 10195616 (Version 1)
Quarter: 2014Q2

REPORT INFORMATION
  Report Type: Spontaneous
  Country: US (occurrence: US)
  Receive Date: 20140527
  Receipt Date: 20140527
  Transmission Date: 20141212
  Serious: Yes (Other)
  Sender: FDA-Public Use
  Company Number: US-ROCHE-1403354

PATIENT
  Age: 59 Year
  Sex: Female
  Weight: 89.44 kg

DRUGS (5)
  1. PERJETA [Suspect]
     Indication: BREAST CANCER METASTATIC
     Dosage: LOADING DOSE
     Route: 042
  2. PERJETA [Suspect]
     Route: 042
     Dates: start: 20140516, end: 20140516
  3. DEXAMETHASONE [Concomitant]
     Dosage: X 1 AS PREMED
     Route: 042
     Dates: start: 20140516
  4. ACETAMINOPHEN [Concomitant]
     Dosage: X1 PREMED
     Route: 048
     Dates: start: 20140516
  5. PALONOSETRON [Concomitant]
     Dosage: X 1 AS PREMED
     Route: 042
     Dates: start: 20140516

REACTIONS (7)
  - Flushing [Recovered/Resolved]
  - Dyspnoea [Recovered/Resolved]
  - Loss of consciousness [Recovered/Resolved]
  - Hypersensitivity [Unknown]
  - Erythema [Unknown]
  - Eye movement disorder [Unknown]
  - Nausea [Unknown]
